FAERS Safety Report 8772450 (Version 1)
Quarter: 2012Q4

REPORT INFORMATION
  Report Type: 
  Country: BR (occurrence: BR)
  Receive Date: 20120905
  Receipt Date: 20120905
  Transmission Date: 20130627
  Serious: Yes (Other)
  Sender: FDA-Public Use
  Company Number: BR-GLAXOSMITHKLINE-A0992023A

PATIENT
  Age: 19 Year
  Sex: Male

DRUGS (3)
  1. NIQUITIN 21MG [Suspect]
     Indication: SMOKING CESSATION THERAPY
     Dosage: 21MG Single dose
     Route: 062
     Dates: start: 20120829
  2. CANNABIS SATIVA SUBSP. INDICA TOP [Suspect]
  3. COCAINE [Suspect]

REACTIONS (2)
  - Unresponsive to stimuli [Not Recovered/Not Resolved]
  - Somnolence [Unknown]
